FAERS Safety Report 24803208 (Version 1)
Quarter: 2025Q1

REPORT INFORMATION
  Report Type: Report from Study
  Country: US (occurrence: US)
  Receive Date: 20250103
  Receipt Date: 20250103
  Transmission Date: 20250408
  Serious: Yes (Other)
  Sender: Pyros Pharmaceuticals
  Company Number: US-PYROS PHARMACEUTICALS, INC-2024-PYROS-US000145

PATIENT
  Sex: Female
  Weight: 16.3 kg

DRUGS (11)
  1. VIGAFYDE [Suspect]
     Active Substance: VIGABATRIN
     Indication: Infantile spasms
     Dosage: 250 MG (2.5 ML), DAILY EVERY MORNING
     Route: 048
     Dates: start: 20241114, end: 20241215
  2. VIGAFYDE [Suspect]
     Active Substance: VIGABATRIN
     Dosage: 750 MG (7.5 ML), DAILY EVERY EVENING
     Route: 048
     Dates: start: 20241114, end: 20241215
  3. VIGAFYDE [Suspect]
     Active Substance: VIGABATRIN
     Dosage: 750 MG (7.5 ML), BID
     Route: 048
     Dates: start: 20241216
  4. FINTEPLA [Concomitant]
     Active Substance: FENFLURAMINE
     Indication: Product used for unknown indication
     Route: 065
  5. XCOPRI [Concomitant]
     Active Substance: CENOBAMATE
     Indication: Product used for unknown indication
     Route: 065
  6. HERBALS\TETRAHYDROCANNABINOL UNSPECIFIED [Concomitant]
     Active Substance: HERBALS\TETRAHYDROCANNABINOL UNSPECIFIED
     Indication: Product used for unknown indication
     Route: 065
  7. ONFI [Concomitant]
     Active Substance: CLOBAZAM
     Indication: Product used for unknown indication
     Dosage: 5 ML EVERY MORNING
     Route: 065
     Dates: end: 2024
  8. ONFI [Concomitant]
     Active Substance: CLOBAZAM
     Dosage: 7 ML EVERY EVENING
     Route: 065
     Dates: end: 2024
  9. ONFI [Concomitant]
     Active Substance: CLOBAZAM
     Dosage: 2 ML EVERY MORNING
     Route: 065
     Dates: start: 2024
  10. ONFI [Concomitant]
     Active Substance: CLOBAZAM
     Dosage: 3 ML EVERY EVENING
     Route: 065
     Dates: start: 2024
  11. VITAMIN D [Concomitant]
     Active Substance: VITAMIN D NOS
     Indication: Product used for unknown indication
     Route: 065

REACTIONS (3)
  - Seizure [Not Recovered/Not Resolved]
  - Drug ineffective [Not Recovered/Not Resolved]
  - Off label use [Unknown]

NARRATIVE: CASE EVENT DATE: 20240101
